FAERS Safety Report 13046656 (Version 2)
Quarter: 2017Q1

REPORT INFORMATION
  Report Type: Spontaneous
  Country: US (occurrence: US)
  Receive Date: 20161220
  Receipt Date: 20170303
  Transmission Date: 20170428
  Serious: Yes (Hospitalization, Disabling, Other)
  Sender: FDA-Public Use
  Company Number: US-PFIZER INC-2016586731

PATIENT
  Age: 57 Year
  Sex: Male

DRUGS (2)
  1. DEPO-TESTOSTERONE [Suspect]
     Active Substance: TESTOSTERONE CYPIONATE
     Indication: HORMONE REPLACEMENT THERAPY
     Dosage: UNK, 2X/WEEK
     Dates: start: 20130612, end: 20140117
  2. TESTOSTERONE CYPIONATE. [Suspect]
     Active Substance: TESTOSTERONE CYPIONATE
     Indication: HORMONE REPLACEMENT THERAPY
     Dosage: UNK, 2X/WEEK
     Dates: start: 201306, end: 201401

REACTIONS (5)
  - Pulmonary thrombosis [Unknown]
  - Pulmonary embolism [Unknown]
  - Temperature intolerance [Unknown]
  - Chronic obstructive pulmonary disease [Not Recovered/Not Resolved]
  - Fear of death [Unknown]

NARRATIVE: CASE EVENT DATE: 2014
